FAERS Safety Report 22207556 (Version 3)
Quarter: 2023Q2

REPORT INFORMATION
  Report Type: Spontaneous
  Country: US (occurrence: US)
  Receive Date: 20230413
  Receipt Date: 20230607
  Transmission Date: 20230721
  Serious: Yes (Other)
  Sender: FDA-Public Use
  Company Number: US-PFIZER INC-PV202300067054

PATIENT
  Age: 75 Year
  Sex: Female

DRUGS (16)
  1. CELEBREX [Suspect]
     Active Substance: CELECOXIB
     Dosage: UNK
     Route: 065
  2. PREMARIN [Suspect]
     Active Substance: ESTROGENS, CONJUGATED
     Dosage: UNK
  3. RUXIENCE [Suspect]
     Active Substance: RITUXIMAB-PVVR
     Indication: B-cell lymphoma
     Dosage: UNK
     Route: 065
  4. RUXIENCE [Suspect]
     Active Substance: RITUXIMAB-PVVR
     Indication: Monoclonal gammopathy
  5. RUXIENCE [Suspect]
     Active Substance: RITUXIMAB-PVVR
     Indication: Anaemia
  6. RUXIENCE [Suspect]
     Active Substance: RITUXIMAB-PVVR
     Indication: Iron deficiency anaemia
  7. RUXIENCE [Suspect]
     Active Substance: RITUXIMAB-PVVR
     Indication: Anaemia
  8. RUXIENCE [Suspect]
     Active Substance: RITUXIMAB-PVVR
     Indication: Renal failure
  9. RUXIENCE [Suspect]
     Active Substance: RITUXIMAB-PVVR
     Indication: Lymphoma
  10. RITUXAN [Suspect]
     Active Substance: RITUXIMAB
     Indication: B-cell lymphoma
     Dosage: UNK
  11. RITUXAN [Suspect]
     Active Substance: RITUXIMAB
     Indication: Monoclonal gammopathy
  12. RITUXAN [Suspect]
     Active Substance: RITUXIMAB
     Indication: Anaemia
  13. RITUXAN [Suspect]
     Active Substance: RITUXIMAB
     Indication: Iron deficiency anaemia
  14. RITUXAN [Suspect]
     Active Substance: RITUXIMAB
     Indication: Renal failure
  15. RITUXAN [Suspect]
     Active Substance: RITUXIMAB
     Indication: Anaemia
  16. RITUXAN [Suspect]
     Active Substance: RITUXIMAB
     Indication: Lymphoma

REACTIONS (4)
  - COVID-19 pneumonia [Unknown]
  - Mental disorder [Unknown]
  - Weight decreased [Unknown]
  - Asthenia [Not Recovered/Not Resolved]
